FAERS Safety Report 9584685 (Version 1)
Quarter: 2013Q4

REPORT INFORMATION
  Report Type: Spontaneous
  Country: US (occurrence: US)
  Receive Date: 20131002
  Receipt Date: 20131002
  Transmission Date: 20140711
  Serious: No
  Sender: FDA-Public Use
  Company Number: US-AMGEN-USASP2013054604

PATIENT
  Age: 55 Year
  Sex: Female
  Weight: 63.94 kg

DRUGS (10)
  1. ENBREL [Suspect]
     Indication: PRODUCT USED FOR UNKNOWN INDICATION
     Dosage: 50 MG, QWK
     Route: 058
  2. METHOTREXATE [Concomitant]
     Dosage: 2.5 MG, UNK
  3. PREDNISONE [Concomitant]
     Dosage: 1 MG, UNK
  4. ISONIAZID [Concomitant]
     Dosage: 100 MG, UNK
  5. METOPROLOL [Concomitant]
     Dosage: 25 MG, UNK
  6. ESTRADIOL [Concomitant]
     Dosage: 0.05 MG, UNK
  7. FENOFIBRATE [Concomitant]
     Dosage: 130 MG, UNK
  8. VITAMIN D                          /00107901/ [Concomitant]
     Dosage: 1000 UNIT, UNK
  9. MULTIVITAMINS, PLAIN [Concomitant]
     Dosage: UNK
  10. VITAMIN B6 [Concomitant]
     Dosage: 200 MG, UNK

REACTIONS (4)
  - Injection site bruising [Unknown]
  - Joint swelling [Unknown]
  - Joint stiffness [Unknown]
  - Mycobacterium tuberculosis complex test positive [Unknown]
